FAERS Safety Report 4543838-2 (Version None)
Quarter: 2005Q1

REPORT INFORMATION
  Report Type: 
  Country: None (occurrence: None)
  Receive Date: 20050103
  Receipt Date: 20041213
  Transmission Date: 20050727
  Serious: Yes (Life-Threatening, Hospitalization)
  Sender: FDA-Public Use
  Company Number: GXKR2004GB00601

PATIENT
  Age: 71 Year
  Sex: Female

DRUGS (6)
  1. INDOMETHACIN [Suspect]
     Dosage: 50 MG, TID, ORAL
     Route: 048
     Dates: end: 20041110
  2. CO-CODAMOL (CODEINE PHOSPHATE, PARACETAMOL) [Concomitant]
  3. ANASTROZOLE (ANASTROZOLE) [Concomitant]
  4. LOSARTAN (LOSARTAN) [Concomitant]
  5. FLUCLOXACILLIN (FLUCLOXACILLIN) [Concomitant]
  6. PENICILLIN V [Concomitant]

REACTIONS (3)
  - ENCEPHALOPATHY [None]
  - GOUT [None]
  - RENAL FAILURE ACUTE [None]
